FAERS Safety Report 9198423 (Version 1)
Quarter: 2013Q1

REPORT INFORMATION
  Report Type: Spontaneous
  Country: US (occurrence: None)
  Receive Date: 20120709
  Receipt Date: 20120709
  Transmission Date: 20140127
  Serious: Yes (Hospitalization)
  Sender: FDA-Public Use
  Company Number: PHEH2011US06692

PATIENT
  Sex: 0

DRUGS (2)
  1. GLEEVEC (IMATINIB) UNKNOWN [Suspect]
  2. HYDREA (HYDROXYCARBAMIDE) [Concomitant]

REACTIONS (2)
  - Chronic myeloid leukaemia [None]
  - Renal failure [None]
